FAERS Safety Report 6115126-4 (Version None)
Quarter: 2009Q1

REPORT INFORMATION
  Report Type: 
  Country: None (occurrence: None)
  Receive Date: 20090313
  Receipt Date: 20090306
  Transmission Date: 20090719
  Serious: Yes (Other)
  Sender: FDA-Public Use
  Company Number: FR-PFIZER INC-2009179264

PATIENT

DRUGS (4)
  1. IRINOTECAN HCL [Suspect]
     Indication: ACUTE PROMYELOCYTIC LEUKAEMIA
  2. OXALIPLATIN [Suspect]
     Indication: ACUTE PROMYELOCYTIC LEUKAEMIA
  3. FLUOROURACIL [Concomitant]
     Indication: ACUTE PROMYELOCYTIC LEUKAEMIA
  4. LEUCOVORIN CALCIUM [Concomitant]
     Indication: ACUTE PROMYELOCYTIC LEUKAEMIA

REACTIONS (2)
  - ACUTE PROMYELOCYTIC LEUKAEMIA [None]
  - NEOPLASM MALIGNANT [None]
